FAERS Safety Report 10074615 (Version 1)
Quarter: 2014Q2

REPORT INFORMATION
  Report Type: Report from Study
  Country: AT (occurrence: AT)
  Receive Date: 20140414
  Receipt Date: 20140414
  Transmission Date: 20141212
  Serious: Yes (Congenital Anomaly)
  Sender: FDA-Public Use
  Company Number: AT-UCBSA-117746

PATIENT
  Sex: 0

DRUGS (2)
  1. LEVETIRACETAM [Suspect]
     Indication: EPILEPSY
     Dosage: DAILY DOSE: 3000 (UNITS UNSPECIFIED)
     Route: 064
     Dates: end: 2010
  2. ZONISAMIDE [Suspect]
     Indication: EPILEPSY
     Dosage: UNKNOWN DOSE
     Route: 064
     Dates: end: 2010

REACTIONS (2)
  - Atrial septal defect [Unknown]
  - Foetal exposure during pregnancy [Recovered/Resolved]
